FAERS Safety Report 9248352 (Version 1)
Quarter: 2013Q1

REPORT INFORMATION
  Report Type: Spontaneous
  Country: US (occurrence: None)
  Receive Date: 20130305
  Receipt Date: 20130305
  Transmission Date: 20140127
  Serious: Yes (Other)
  Sender: FDA-Public Use
  Company Number: 163-21880-12093190

PATIENT
  Age: 72 Year
  Sex: Male

DRUGS (4)
  1. REVLIMID [Suspect]
     Indication: PLASMA CELL MYELOMA
     Dosage: 5 MG, 28 IN 28 D, PO
     Dates: start: 20120912
  2. HYDROCORTISONE (HYDROCORTISONE) [Concomitant]
  3. STOOL SOFTENER (DOCUSATE SODIUM) [Concomitant]
  4. LEVAQUIN (LEVOFLOXACIN) [Concomitant]

REACTIONS (3)
  - Pyrexia [None]
  - Decreased appetite [None]
  - Back pain [None]
